FAERS Safety Report 20040392 (Version 1)
Quarter: 2021Q4

REPORT INFORMATION
  Report Type: Spontaneous
  Country: US (occurrence: None)
  Receive Date: 20211104
  Receipt Date: 20211104
  Transmission Date: 20220304
  Serious: Yes (Life-Threatening, Hospitalization, Disabling, Other)
  Sender: FDA-Public Use
  Company Number: None

PATIENT
  Age: 65 Year
  Sex: Female
  Weight: 92.76 kg

DRUGS (19)
  1. SAXENDA [Suspect]
     Active Substance: LIRAGLUTIDE
     Indication: Weight decreased
     Dosage: FREQUENCY : DAILY;?
     Dates: start: 201809, end: 201812
  2. SAXENDA [Suspect]
     Active Substance: LIRAGLUTIDE
     Dates: start: 202009, end: 202101
  3. LISINOPRIL [Concomitant]
     Active Substance: LISINOPRIL
  4. OMEPRAZOLE [Concomitant]
     Active Substance: OMEPRAZOLE
  5. CALCIUM [Concomitant]
     Active Substance: CALCIUM
  6. XANAX [Concomitant]
     Active Substance: ALPRAZOLAM
  7. OXYCODONE [Concomitant]
     Active Substance: OXYCODONE
  8. PROCHLORPERAZINE [Concomitant]
     Active Substance: PROCHLORPERAZINE
  9. FLUOROURACIL [Concomitant]
     Active Substance: FLUOROURACIL
  10. LEUCOVORIN [Concomitant]
     Active Substance: LEUCOVORIN
  11. OXALIPLATIN [Concomitant]
     Active Substance: OXALIPLATIN
  12. CALCIUM [Concomitant]
     Active Substance: CALCIUM
  13. VITAMIN D NOS [Concomitant]
     Active Substance: VITAMIN D NOS
  14. VITAMIN B12 [Concomitant]
     Active Substance: CYANOCOBALAMIN
  15. VITAMINS [Concomitant]
     Active Substance: VITAMINS
  16. CLARITIN [Concomitant]
     Active Substance: LORATADINE
  17. BENADRYL [Concomitant]
     Active Substance: DIPHENHYDRAMINE HYDROCHLORIDE
  18. TYLENOL [Concomitant]
     Active Substance: ACETAMINOPHEN
  19. Smart Port [Concomitant]

REACTIONS (2)
  - Appendix cancer [None]
  - Gastric bypass [None]

NARRATIVE: CASE EVENT DATE: 20210725
